FAERS Safety Report 18671358 (Version 3)
Quarter: 2025Q3

REPORT INFORMATION
  Report Type: Spontaneous
  Country: US (occurrence: US)
  Receive Date: 20201228
  Receipt Date: 20250822
  Transmission Date: 20251020
  Serious: No
  Sender: MYLAN
  Company Number: US-PFIZER INC-2020506981

PATIENT
  Sex: Female
  Weight: 71.67 kg

DRUGS (4)
  1. LYRICA [Suspect]
     Active Substance: PREGABALIN
     Indication: Fibromyalgia
     Dosage: 200 MILLIGRAM, QD 1X/DAY
  2. LYRICA [Suspect]
     Active Substance: PREGABALIN
  3. LYRICA [Suspect]
     Active Substance: PREGABALIN
     Indication: Product used for unknown indication
  4. PREGABALIN [Concomitant]
     Active Substance: PREGABALIN
     Indication: Fibromyalgia
     Dosage: 300 MILLIGRAM, BID 2X/DAY
     Dates: start: 2008

REACTIONS (2)
  - Pain [Recovering/Resolving]
  - Product dose omission issue [Unknown]

NARRATIVE: CASE EVENT DATE: 20080101
